FAERS Safety Report 23499564 (Version 1)
Quarter: 2024Q1

REPORT INFORMATION
  Report Type: Other
  Country: NZ (occurrence: NZ)
  Receive Date: 20240208
  Receipt Date: 20240208
  Transmission Date: 20240410
  Serious: Yes (Other)
  Sender: FDA-Public Use
  Company Number: NZ-TASMAN PHARMA, INC.-2024TSM00036

PATIENT
  Age: 27 Year
  Sex: Male

DRUGS (3)
  1. CLOZAPINE [Suspect]
     Active Substance: CLOZAPINE
  2. EPILIM [Suspect]
     Active Substance: VALPROATE SODIUM
  3. OXYBUTYNIN [Concomitant]
     Active Substance: OXYBUTYNIN\OXYBUTYNIN CHLORIDE

REACTIONS (4)
  - Emphysema [Unknown]
  - Myocarditis [Unknown]
  - Seizure [Unknown]
  - Sepsis [Unknown]
